FAERS Safety Report 8451809-9 (Version None)
Quarter: 2012Q2

REPORT INFORMATION
  Report Type: 
  Country: None (occurrence: None)
  Receive Date: 20120620
  Receipt Date: 20120319
  Transmission Date: 20120825
  Serious: Yes (Hospitalization)
  Sender: FDA-Public Use
  Company Number: US-VERTEX PHARMACEUTICALS INC.-AE-2012-003926

PATIENT
  Sex: Male
  Weight: 59.928 kg

DRUGS (6)
  1. INCIVEK [Suspect]
     Route: 048
     Dates: start: 20120227
  2. PEGINTERFERON ALFA-2A [Concomitant]
     Dates: start: 20120227
  3. INCIVEK [Suspect]
     Indication: HEPATITIS C
     Route: 048
     Dates: start: 20120101
  4. RIBAVIRIN [Concomitant]
     Indication: HEPATITIS C
     Dates: start: 20120101
  5. PEGINTERFERON ALFA-2A [Concomitant]
     Indication: HEPATITIS C
     Dates: start: 20120101
  6. RIBAVIRIN [Concomitant]
     Dates: start: 20120227

REACTIONS (3)
  - ANAEMIA [None]
  - RASH [None]
  - PLATELET COUNT DECREASED [None]
